FAERS Safety Report 15732427 (Version 5)
Quarter: 2019Q2

REPORT INFORMATION
  Report Type: Spontaneous
  Country: US (occurrence: US)
  Receive Date: 20181217
  Receipt Date: 20190613
  Transmission Date: 20190711
  Serious: Yes (Other)
  Sender: FDA-Public Use
  Company Number: US-NOVOPROD-634936

PATIENT
  Age: 46 Year
  Sex: Female
  Weight: 91.61 kg

DRUGS (3)
  1. OZEMPIC [Suspect]
     Active Substance: SEMAGLUTIDE
     Indication: TYPE 2 DIABETES MELLITUS
     Dosage: 0.25 MG, UNK
     Route: 058
     Dates: start: 201809, end: 201809
  2. METFORMIN [Concomitant]
     Active Substance: METFORMIN HYDROCHLORIDE
     Indication: TYPE 2 DIABETES MELLITUS
     Dosage: 500 MG, BID (AS MUCH AS 4 TABLETS PER DAY)
  3. OZEMPIC [Suspect]
     Active Substance: SEMAGLUTIDE
     Indication: HYPERGLYCAEMIA

REACTIONS (7)
  - Low density lipoprotein increased [Unknown]
  - Weight decreased [Unknown]
  - Stevens-Johnson syndrome [Recovering/Resolving]
  - Angioedema [Recovered/Resolved]
  - Blood creatinine decreased [Unknown]
  - Blood triglycerides increased [Unknown]
  - Blood glucose decreased [Unknown]

NARRATIVE: CASE EVENT DATE: 2018
